FAERS Safety Report 25846504 (Version 1)
Quarter: 2025Q3

REPORT INFORMATION
  Report Type: Spontaneous
  Country: US (occurrence: US)
  Receive Date: 20250925
  Receipt Date: 20250925
  Transmission Date: 20251020
  Serious: No
  Sender: SANOFI AVENTIS
  Company Number: US-SA-2025SA286209

PATIENT
  Sex: Female

DRUGS (14)
  1. DUPIXENT [Suspect]
     Active Substance: DUPILUMAB
     Indication: Nasal polyps
     Dosage: 300 MG, QOW
     Route: 058
  2. POTASSIUM CHLORIDE [Concomitant]
     Active Substance: POTASSIUM CHLORIDE
  3. TYLENOL [Concomitant]
     Active Substance: ACETAMINOPHEN
  4. ALBUTEROL SULFATE [Concomitant]
     Active Substance: ALBUTEROL SULFATE
  5. DOXYCYCLINE [Concomitant]
     Active Substance: DOXYCYCLINE
  6. DULERA [Concomitant]
     Active Substance: FORMOTEROL FUMARATE DIHYDRATE\MOMETASONE FUROATE
  7. EPIPEN [Concomitant]
     Active Substance: EPINEPHRINE
  8. FLONASE ALLERGY RELIEF [Concomitant]
     Active Substance: FLUTICASONE PROPIONATE
  9. NIFEDIPINE [Concomitant]
     Active Substance: NIFEDIPINE
  10. OLMESARTAN MEDOXOMIL [Concomitant]
     Active Substance: OLMESARTAN MEDOXOMIL
  11. OMEPRAZOLE [Concomitant]
     Active Substance: OMEPRAZOLE
  12. PRAVASTATIN [Concomitant]
     Active Substance: PRAVASTATIN
  13. TORSEMIDE [Concomitant]
     Active Substance: TORSEMIDE
  14. ZYRTEC [Concomitant]
     Active Substance: CETIRIZINE HYDROCHLORIDE

REACTIONS (3)
  - Headache [Unknown]
  - Blood potassium decreased [Unknown]
  - Arthralgia [Unknown]
